FAERS Safety Report 11910055 (Version 1)
Quarter: 2016Q1

REPORT INFORMATION
  Report Type: Spontaneous
  Country: US (occurrence: None)
  Receive Date: 20160111
  Receipt Date: 20160111
  Transmission Date: 20160526
  Serious: No
  Sender: FDA-Public Use
  Company Number: None

PATIENT
  Sex: Female

DRUGS (1)
  1. SENSIPAR [Suspect]
     Active Substance: CINACALCET HYDROCHLORIDE
     Indication: RENAL DISORDER
     Route: 048
     Dates: start: 20151209, end: 20151231

REACTIONS (6)
  - Diarrhoea [None]
  - Muscle spasms [None]
  - Headache [None]
  - Abdominal pain upper [None]
  - Dizziness [None]
  - Insomnia [None]
